FAERS Safety Report 9789056 (Version 1)
Quarter: 2013Q4

REPORT INFORMATION
  Report Type: Spontaneous
  Country: US (occurrence: US)
  Receive Date: 20131230
  Receipt Date: 20131230
  Transmission Date: 20140711
  Serious: No
  Sender: FDA-Public Use
  Company Number: US-ASTRAZENECA-2013SE84842

PATIENT
  Age: 65 Year
  Sex: Female
  Weight: 132.9 kg

DRUGS (7)
  1. BRILINTA [Suspect]
     Indication: CORONARY ARTERY BYPASS
     Route: 048
     Dates: start: 20130913, end: 20131113
  2. INSULIN [Concomitant]
  3. BETA BLOCKER [Concomitant]
  4. ARB [Concomitant]
  5. CHOLESTEROL MEDICATION [Concomitant]
  6. ALLERGY MEDICATION [Concomitant]
  7. XANAX [Concomitant]
     Indication: ANXIETY

REACTIONS (5)
  - Arthralgia [Recovered/Resolved]
  - Joint swelling [Recovered/Resolved]
  - Skin discolouration [Unknown]
  - Contusion [Unknown]
  - Intentional drug misuse [Unknown]
